FAERS Safety Report 8470671-1 (Version None)
Quarter: 2012Q2

REPORT INFORMATION
  Report Type: 
  Country: None (occurrence: None)
  Receive Date: 20120627
  Receipt Date: 20120625
  Transmission Date: 20120825
  Serious: Yes (Death, Other)
  Sender: FDA-Public Use
  Company Number: PHHY2011JP103837

PATIENT
  Sex: Female
  Weight: 76 kg

DRUGS (7)
  1. TS-1 [Concomitant]
  2. PACLITAXEL [Concomitant]
  3. MEDROXYPROGESTERONE ACETATE [Concomitant]
  4. ZOMETA [Suspect]
     Indication: METASTASES TO BONE
     Dosage: 4 MG, UNK
     Route: 041
     Dates: start: 20060501, end: 20090501
  5. CAPECITABINE [Concomitant]
  6. TOR [Concomitant]
  7. AREDIA [Suspect]
     Indication: METASTASES TO BONE
     Route: 041
     Dates: start: 20060201, end: 20060501

REACTIONS (11)
  - RESPIRATORY DISORDER [None]
  - NEOPLASM PROGRESSION [None]
  - OSTEONECROSIS OF JAW [None]
  - PLEURAL EFFUSION [None]
  - METASTASES TO CHEST WALL [None]
  - BONE NEOPLASM [None]
  - MEDIASTINAL SHIFT [None]
  - GENERAL PHYSICAL HEALTH DETERIORATION [None]
  - NEOPLASM MALIGNANT [None]
  - METASTASES TO BONE [None]
  - PNEUMONIA STAPHYLOCOCCAL [None]
